FAERS Safety Report 10590013 (Version 2)
Quarter: 2015Q1

REPORT INFORMATION
  Report Type: Spontaneous
  Country: US (occurrence: None)
  Receive Date: 20141114
  Receipt Date: 20150227
  Transmission Date: 20150720
  Serious: Yes (Hospitalization, Other)
  Sender: FDA-Public Use
  Company Number: ADR-2014-01778

PATIENT
  Age: 18 Year
  Sex: Male

DRUGS (2)
  1. BACLOFEN INTRATHECAL [Suspect]
     Active Substance: BACLOFEN
     Indication: MUSCLE SPASTICITY
  2. BACLOFEN INTRATHECAL [Suspect]
     Active Substance: BACLOFEN
     Indication: MUSCLE SPASTICITY
     Dates: start: 20141020

REACTIONS (8)
  - Disease recurrence [None]
  - Rash [None]
  - Muscle spasticity [None]
  - Pain [None]
  - Device malfunction [None]
  - Sepsis [None]
  - Tremor [None]
  - Pyrexia [None]
